FAERS Safety Report 8468789-2 (Version None)
Quarter: 2012Q2

REPORT INFORMATION
  Report Type: 
  Country: None (occurrence: None)
  Receive Date: 20120626
  Receipt Date: 20120611
  Transmission Date: 20120825
  Serious: Yes (Other)
  Sender: FDA-Public Use
  Company Number: IN-WATSON-2012-10421

PATIENT
  Age: 35 Year
  Sex: Female

DRUGS (4)
  1. CLOZAPINE [Suspect]
     Indication: SCHIZOPHRENIA
     Dosage: 25MG TITRATED TO 400 MG DAILY, OVER A PERIOD OF TWO MONTHS
     Route: 065
  2. CLOZAPINE [Suspect]
     Dosage: 200 MG, DAILY
     Route: 065
  3. VALPROATE SODIUM [Suspect]
     Indication: GRAND MAL CONVULSION
     Dosage: 1000 MG, DAILY
     Route: 065
  4. RISPERIDONE [Suspect]
     Indication: SCHIZOPHRENIA, PARANOID TYPE
     Dosage: 4 MG, DAILY
     Route: 065

REACTIONS (2)
  - ASTERIXIS [None]
  - DRUG INTERACTION [None]
